FAERS Safety Report 18113716 (Version 1)
Quarter: 2020Q3

REPORT INFORMATION
  Report Type: Spontaneous
  Country: PK (occurrence: PK)
  Receive Date: 20200805
  Receipt Date: 20200805
  Transmission Date: 20201103
  Serious: No
  Sender: FDA-Public Use
  Company Number: None

PATIENT
  Age: 48 Year
  Sex: Male
  Weight: 82 kg

DRUGS (2)
  1. AM? TELSAN (AMLODIPINE/TELMISARTAN) [Suspect]
     Active Substance: AMLODIPINE BESYLATE\TELMISARTAN
     Indication: HYPERTENSION
     Route: 048
  2. SEROXAT [Concomitant]
     Active Substance: PAROXETINE HYDROCHLORIDE

REACTIONS (7)
  - Drug intolerance [None]
  - Vertigo [None]
  - Confusional state [None]
  - Tinnitus [None]
  - Balance disorder [None]
  - Intentional dose omission [None]
  - Hypertension [None]

NARRATIVE: CASE EVENT DATE: 20180914
